FAERS Safety Report 6484207-8 (Version None)
Quarter: 2009Q4

REPORT INFORMATION
  Report Type: 
  Country: None (occurrence: None)
  Receive Date: 20091209
  Receipt Date: 20091202
  Transmission Date: 20100525
  Serious: Yes (Other)
  Sender: FDA-Public Use
  Company Number: A0816533A

PATIENT
  Age: 54 Year
  Sex: Female
  Weight: 69.5 kg

DRUGS (2)
  1. TYKERB [Suspect]
     Dosage: 1000MG PER DAY
     Route: 048
     Dates: start: 20090901
  2. GEMZAR [Suspect]
     Route: 042
     Dates: start: 20090917

REACTIONS (7)
  - DIARRHOEA [None]
  - ERYTHEMA [None]
  - GASTROINTESTINAL TOXICITY [None]
  - HAEMOGLOBIN ABNORMAL [None]
  - NAUSEA [None]
  - PAIN IN EXTREMITY [None]
  - VOMITING [None]
